FAERS Safety Report 6572436-4 (Version None)
Quarter: 2010Q1

REPORT INFORMATION
  Report Type: 
  Country: None (occurrence: None)
  Receive Date: 20100205
  Receipt Date: 20100201
  Transmission Date: 20100710
  Serious: Yes (Other)
  Sender: FDA-Public Use
  Company Number: US-PFIZER INC-2010013445

PATIENT

DRUGS (1)
  1. TOVIAZ [Suspect]

REACTIONS (2)
  - DRUG WITHDRAWAL SYNDROME [None]
  - MENIERE'S DISEASE [None]
